FAERS Safety Report 15218371 (Version 2)
Quarter: 2018Q3

REPORT INFORMATION
  Report Type: Spontaneous
  Country: US (occurrence: US)
  Receive Date: 20180730
  Receipt Date: 20180731
  Transmission Date: 20181010
  Serious: No
  Sender: FDA-Public Use
  Company Number: US-009507513-1807USA009583

PATIENT
  Sex: Female
  Weight: 68.03 kg

DRUGS (4)
  1. METFORMIN [Concomitant]
     Active Substance: METFORMIN HYDROCHLORIDE
  2. LOSARTAN. [Concomitant]
     Active Substance: LOSARTAN
  3. GLIPIZIDE. [Concomitant]
     Active Substance: GLIPIZIDE
  4. JANUVIA [Suspect]
     Active Substance: SITAGLIPTIN PHOSPHATE
     Indication: DIABETES MELLITUS
     Dosage: UNK
     Route: 048
     Dates: start: 2017, end: 20180717

REACTIONS (2)
  - Glycosylated haemoglobin increased [Unknown]
  - Medication residue present [Recovered/Resolved]

NARRATIVE: CASE EVENT DATE: 2018
